FAERS Safety Report 10541690 (Version 2)
Quarter: 2014Q4

REPORT INFORMATION
  Report Type: Spontaneous
  Country: None (occurrence: US)
  Receive Date: 20141024
  Receipt Date: 20141024
  Transmission Date: 20150529
  Serious: No
  Sender: FDA-Public Use
  Company Number: US-ALLERGAN-1406497US

PATIENT
  Sex: Female

DRUGS (1)
  1. ALPHAGAN P [Suspect]
     Active Substance: BRIMONIDINE TARTRATE
     Indication: GLAUCOMA
     Dosage: 2 GTT, BID
     Route: 047
     Dates: start: 201306, end: 201311

REACTIONS (6)
  - Cough [Recovering/Resolving]
  - Nasal dryness [Unknown]
  - Dry throat [Unknown]
  - Inappropriate schedule of drug administration [Unknown]
  - Intraocular pressure increased [Unknown]
  - Gastrooesophageal reflux disease [Unknown]
